FAERS Safety Report 23619190 (Version 7)
Quarter: 2025Q2

REPORT INFORMATION
  Report Type: Spontaneous
  Country: US (occurrence: US)
  Receive Date: 20240311
  Receipt Date: 20250620
  Transmission Date: 20250717
  Serious: Yes (Other)
  Sender: BRISTOL-MYERS SQUIBB COMPANY
  Company Number: US-BRISTOL-MYERS SQUIBB COMPANY-2024-037778

PATIENT
  Age: 65 Year
  Sex: Male

DRUGS (4)
  1. REVLIMID [Suspect]
     Active Substance: LENALIDOMIDE
     Indication: Plasma cell myeloma
     Dosage: 1 QD FOR 21 DAYS ON THEN 7 DAYS OFF
     Route: 048
  2. REVLIMID [Suspect]
     Active Substance: LENALIDOMIDE
     Dosage: QD FOR 3 WEEKS ON, 1 WEEK OFF
     Route: 048
  3. REVLIMID [Suspect]
     Active Substance: LENALIDOMIDE
     Route: 048
     Dates: start: 202411
  4. REVLIMID [Suspect]
     Active Substance: LENALIDOMIDE
     Route: 048
     Dates: start: 202401, end: 202406

REACTIONS (11)
  - Abdominal pain upper [Unknown]
  - Sensitive skin [Unknown]
  - Headache [Not Recovered/Not Resolved]
  - Dysphonia [Unknown]
  - Stomatitis [Unknown]
  - Rash pruritic [Unknown]
  - Rhinorrhoea [Not Recovered/Not Resolved]
  - Skin disorder [Unknown]
  - Pruritus [Unknown]
  - Rash [Recovering/Resolving]
  - Eczema [Unknown]

NARRATIVE: CASE EVENT DATE: 20241101
